FAERS Safety Report 5999639-1 (Version None)
Quarter: 2008Q4

REPORT INFORMATION
  Report Type: 
  Country: None (occurrence: None)
  Receive Date: 20081211
  Receipt Date: 20081126
  Transmission Date: 20090506
  Serious: Yes (Congenital Anomaly)
  Sender: FDA-Public Use
  Company Number: 2008S1021193

PATIENT
  Sex: Male
  Weight: 2.1 kg

DRUGS (4)
  1. OXPRENOLOL (OXPRENOLOL) [Suspect]
     Dosage: TRANSPLACENTAL
     Route: 064
  2. FELODIPINE [Suspect]
     Dosage: TRANSPLACENTAL
     Route: 064
  3. PRAZOSIN GITS [Suspect]
     Dosage: TRANSPLACENTAL
     Route: 064
  4. CAPTOPRIL [Suspect]
     Dosage: TRANSPLACENTAL
     Route: 064

REACTIONS (3)
  - MATERNAL DRUGS AFFECTING FOETUS [None]
  - PREMATURE BABY [None]
  - VENTRICULAR SEPTAL DEFECT [None]
